FAERS Safety Report 5568933-0 (Version None)
Quarter: 2007Q4

REPORT INFORMATION
  Report Type: 
  Country: None (occurrence: None)
  Receive Date: 20071220
  Receipt Date: 20070327
  Transmission Date: 20080405
  Serious: No
  Sender: FDA-Public Use
  Company Number: A0644817A

PATIENT
  Age: 56 Year
  Sex: Male

DRUGS (3)
  1. AVODART [Suspect]
     Indication: BENIGN PROSTATIC HYPERPLASIA
     Dosage: .5MG PER DAY
     Route: 048
     Dates: end: 20070326
  2. FLOMAX [Suspect]
     Indication: DRUG USE FOR UNKNOWN INDICATION
     Route: 065
  3. BLOOD PRESSURE MEDICATION [Concomitant]

REACTIONS (2)
  - CHEST PAIN [None]
  - MYALGIA [None]
